FAERS Safety Report 18597080 (Version 7)
Quarter: 2021Q4

REPORT INFORMATION
  Report Type: Report from Study
  Country: DE (occurrence: DE)
  Receive Date: 20201209
  Receipt Date: 20211101
  Transmission Date: 20220303
  Serious: Yes (Death, Hospitalization)
  Sender: FDA-Public Use
  Company Number: DE-ELI_LILLY_AND_COMPANY-DE202011001720

PATIENT
  Age: 73 Year
  Sex: Male
  Weight: 85 kg

DRUGS (9)
  1. PEMETREXED [Suspect]
     Active Substance: PEMETREXED
     Indication: Non-small cell lung cancer
     Dosage: 350 MILLIGRAM
     Route: 042
  2. PEMETREXED [Suspect]
     Active Substance: PEMETREXED
     Dosage: 500 MILLIGRAM
     Route: 042
     Dates: start: 20201005
  3. CARBOPLATIN [Suspect]
     Active Substance: CARBOPLATIN
     Indication: Non-small cell lung cancer
     Dosage: 170 MILLIGRAM
  4. CARBOPLATIN [Suspect]
     Active Substance: CARBOPLATIN
     Dosage: 220 MILLIGRAM
     Route: 042
     Dates: start: 20201005
  5. PEMBROLIZUMAB [Suspect]
     Active Substance: PEMBROLIZUMAB
     Indication: Non-small cell lung cancer
     Dosage: 200 MG, UNKNOWN
     Route: 042
     Dates: start: 20201005, end: 20201103
  6. PEMBROLIZUMAB [Suspect]
     Active Substance: PEMBROLIZUMAB
     Dosage: 200 MILLIGRAM
     Route: 042
  7. PEGFILGRASTIM [Concomitant]
     Active Substance: PEGFILGRASTIM
     Indication: Product used for unknown indication
     Dosage: 6 MG,ADMINISTERED PER CYCLE,THERAPY DATE FOR ALL: FROM 05OCT UNTIL 26OCT2020
     Route: 058
  8. GRANISETRON [Concomitant]
     Active Substance: GRANISETRON
     Indication: Product used for unknown indication
     Dosage: 1 MG, ADMINISTERED PER CYCLE, THERAPY DATE FOR ALL: FROM 05-OCT UNTIL 26-OCT-2020
     Route: 042
  9. DEXAMETHASONE [Concomitant]
     Active Substance: DEXAMETHASONE
     Indication: Product used for unknown indication
     Dosage: 12 MG, ADMINISTERED PER CYCLE, THERAPY DATE FOR ALL: FROM 05-OCT UNTIL 26-OCT-2020
     Route: 042

REACTIONS (2)
  - Staphylococcal sepsis [Fatal]
  - Pancytopenia [Fatal]

NARRATIVE: CASE EVENT DATE: 20201103
